FAERS Safety Report 8501030 (Version 3)
Quarter: 2013Q1

REPORT INFORMATION
  Report Type: Spontaneous
  Country: BR (occurrence: BR)
  Receive Date: 20120410
  Receipt Date: 20130122
  Transmission Date: 20140127
  Serious: Yes (Other)
  Sender: FDA-Public Use
  Company Number: PHHY2012BR028468

PATIENT
  Sex: Female

DRUGS (2)
  1. DIOVAN AMLO FIX [Suspect]
     Indication: OBESITY
     Dosage: 1 DF (VALS 160 MG, AMLO 5 MG), DAILY
     Route: 048
  2. MATERNA [Concomitant]
     Indication: VITAMIN SUPPLEMENTATION

REACTIONS (4)
  - Diabetes mellitus [Recovered/Resolved]
  - Blood glucose increased [Recovered/Resolved]
  - Hypertension [Recovering/Resolving]
  - Somnolence [Recovered/Resolved]
